FAERS Safety Report 6395949-7 (Version None)
Quarter: 2009Q4

REPORT INFORMATION
  Report Type: 
  Country: None (occurrence: None)
  Receive Date: 20091009
  Receipt Date: 20091007
  Transmission Date: 20100525
  Serious: Yes (Death)
  Sender: FDA-Public Use
  Company Number: AU-SANOFI-SYNTHELABO-A01200909137

PATIENT
  Sex: Female

DRUGS (15)
  1. DEXAMETHASONE 0.5MG TAB [Suspect]
     Indication: NAUSEA
     Dosage: UNK
     Route: 048
     Dates: start: 20090721, end: 20090721
  2. LEUCOVORIN CALCIUM [Suspect]
     Indication: DRUG USE FOR UNKNOWN INDICATION
     Dosage: UNK
     Route: 065
     Dates: start: 20090721, end: 20090721
  3. KYTRIL [Suspect]
     Indication: NAUSEA
     Dosage: UNK
     Route: 065
     Dates: start: 20090721, end: 20090721
  4. OXALIPLATIN [Suspect]
     Indication: COLON CANCER
     Dosage: UNK
     Route: 041
     Dates: start: 20090721, end: 20090721
  5. IBRUFEN [Concomitant]
     Dosage: UNK
     Route: 065
  6. ACETAMINOPHEN [Concomitant]
     Dosage: UNK
     Route: 065
  7. LEVOTHYROXINE SODIUM [Concomitant]
     Dosage: UNK
     Route: 065
  8. ENDONE [Concomitant]
     Dosage: UNK
     Route: 065
  9. OXYCONTIN [Concomitant]
     Dosage: UNK
     Route: 065
  10. ONDANSETRON [Concomitant]
     Dosage: UNK
     Route: 065
     Dates: start: 20090728
  11. LOPERAMIDE [Concomitant]
     Dosage: UNK
     Route: 065
     Dates: start: 20090727
  12. CALCIUM FOLINATE [Concomitant]
     Dosage: UNK
     Route: 065
  13. METOCLOPRAMIDE [Suspect]
     Indication: NAUSEA
     Dosage: UNK
     Route: 048
     Dates: start: 20090721, end: 20090721
  14. NICORETTE [Concomitant]
     Dosage: UNK
     Route: 065
  15. FLUOROURACIL [Suspect]
     Indication: COLON CANCER
     Dosage: 720 MG
     Route: 042
     Dates: start: 20090721, end: 20090721

REACTIONS (3)
  - ARRHYTHMIA [None]
  - DYSTONIA [None]
  - MYOCARDIAL INFARCTION [None]
